FAERS Safety Report 7015305-8 (Version None)
Quarter: 2010Q3

REPORT INFORMATION
  Report Type: 
  Country: None (occurrence: None)
  Receive Date: 20100927
  Receipt Date: 20100923
  Transmission Date: 20110219
  Serious: Yes (Death, Other)
  Sender: FDA-Public Use
  Company Number: JO-CELGENEUS-088-C5013-10083008

PATIENT
  Age: 52 Year
  Sex: Male

DRUGS (5)
  1. CC-5013 [Suspect]
     Indication: MYELOMA RECURRENCE
     Route: 048
     Dates: start: 20100720, end: 20100815
  2. DEXAMETHASONE [Concomitant]
     Indication: PRODUCT USED FOR UNKNOWN INDICATION
     Route: 051
  3. NEURONTIN [Concomitant]
     Route: 065
  4. PLATELETS [Concomitant]
     Indication: PRODUCT USED FOR UNKNOWN INDICATION
     Route: 051
  5. RED BLOOD CELLS [Concomitant]
     Indication: PRODUCT USED FOR UNKNOWN INDICATION
     Route: 051

REACTIONS (3)
  - PULMONARY EMBOLISM [None]
  - RESPIRATORY ARREST [None]
  - VENTRICULAR TACHYCARDIA [None]
